FAERS Safety Report 6739202-8 (Version None)
Quarter: 2010Q2

REPORT INFORMATION
  Report Type: 
  Country: None (occurrence: None)
  Receive Date: 20100525
  Receipt Date: 20100402
  Transmission Date: 20101027
  Serious: No
  Sender: FDA-Public Use
  Company Number: A0853491A

PATIENT
  Age: 5 Year
  Sex: Male

DRUGS (1)
  1. VERAMYST [Suspect]
     Dosage: 1SPR UNKNOWN
     Route: 045

REACTIONS (1)
  - URTICARIA [None]
